FAERS Safety Report 11398364 (Version 1)
Quarter: 2015Q3

REPORT INFORMATION
  Report Type: Spontaneous
  Country: US (occurrence: None)
  Receive Date: 20150817
  Receipt Date: 20150817
  Transmission Date: 20151125
  Serious: Yes (Hospitalization)
  Sender: FDA-Public Use
  Company Number: None

PATIENT
  Age: 88 Year
  Sex: Male
  Weight: 67.3 kg

DRUGS (1)
  1. CEFEPIME [Suspect]
     Active Substance: CEFEPIME HYDROCHLORIDE
     Indication: EPISCLERITIS
     Dosage: 1 GM
     Route: 042
     Dates: start: 20150430, end: 20150503

REACTIONS (2)
  - Neurotoxicity [None]
  - Mental status changes [None]

NARRATIVE: CASE EVENT DATE: 20150503
